FAERS Safety Report 5167274-3 (Version None)
Quarter: 2006Q4

REPORT INFORMATION
  Report Type: 
  Country: None (occurrence: None)
  Receive Date: 20061124
  Receipt Date: 20061120
  Transmission Date: 20070319
  Serious: Yes (Other)
  Sender: FDA-Public Use
  Company Number: 2006144192

PATIENT
  Sex: Female

DRUGS (8)
  1. LYRICA [Suspect]
     Indication: BURNING SENSATION
     Dosage: 25 MG, ORAL
     Route: 048
     Dates: start: 20061001
  2. VICODIN [Concomitant]
  3. LANTUS [Concomitant]
  4. ACTOS [Concomitant]
  5. GLIMEPIRIDE [Concomitant]
  6. BENICAR [Concomitant]
  7. LIPITOR [Concomitant]
  8. ALL OTHER THERAPEUTIC PRODUCTS [Concomitant]

REACTIONS (1)
  - DRUG INEFFECTIVE [None]
